FAERS Safety Report 9327380 (Version 2)
Quarter: 2013Q3

REPORT INFORMATION
  Report Type: Spontaneous
  Country: US (occurrence: US)
  Receive Date: 20130604
  Receipt Date: 20130807
  Transmission Date: 20140515
  Serious: No
  Sender: FDA-Public Use
  Company Number: US-AMGEN-USASP2013034013

PATIENT
  Age: 47 Year
  Sex: Female
  Weight: 74.83 kg

DRUGS (1)
  1. ENBREL [Suspect]
     Indication: PSORIASIS
     Dosage: 50 MG, QWK
     Route: 058
     Dates: start: 2005

REACTIONS (4)
  - Rash macular [Unknown]
  - Expired drug administered [Unknown]
  - Photosensitivity reaction [Unknown]
  - Drug ineffective [Unknown]
